FAERS Safety Report 9972948 (Version 1)
Quarter: 2014Q1

REPORT INFORMATION
  Report Type: Spontaneous
  Country: US (occurrence: US)
  Receive Date: 20140306
  Receipt Date: 20140306
  Transmission Date: 20141002
  Serious: Yes (Other)
  Sender: FDA-Public Use
  Company Number: US-PFIZER INC-2014060245

PATIENT
  Sex: Female
  Weight: 45.35 kg

DRUGS (1)
  1. LATANOPROST [Suspect]
     Indication: GLAUCOMA
     Dosage: 1 GTT, 1X/DAY

REACTIONS (4)
  - Eye infection [Unknown]
  - Eye irritation [Unknown]
  - Eye disorder [Unknown]
  - Product quality issue [Unknown]
